FAERS Safety Report 15192918 (Version 1)
Quarter: 2018Q3

REPORT INFORMATION
  Report Type: Spontaneous
  Country: DK (occurrence: DK)
  Receive Date: 20180725
  Receipt Date: 20180725
  Transmission Date: 20181010
  Serious: Yes (Hospitalization)
  Sender: FDA-Public Use
  Company Number: DK-TEVA-2018-DK-928164

PATIENT
  Age: 78 Year
  Sex: Male

DRUGS (13)
  1. APOVIT B?COMBIN ST?RK [Concomitant]
     Indication: VITAMIN SUPPLEMENTATION
     Dosage: 1 DOSAGE FORMS DAILY; STRENGTH: STRONG
     Route: 048
     Dates: start: 20160922
  2. TIAMIN ^SAD^ [Concomitant]
     Indication: WERNICKE^S ENCEPHALOPATHY
     Dosage: 300 MILLIGRAM DAILY;
     Route: 048
     Dates: start: 20160922
  3. ANTABUS [Suspect]
     Active Substance: DISULFIRAM
     Indication: ALCOHOL USE
     Route: 048
     Dates: start: 20180419, end: 20180504
  4. ESOMEPRAZOL ^ACTAVIS^ [Concomitant]
     Indication: GASTROOESOPHAGEAL REFLUX PROPHYLAXIS
     Dosage: 40 MILLIGRAM DAILY;
     Route: 048
     Dates: start: 20160508
  5. ROZEX (METRONIDAZOLE) [Concomitant]
     Active Substance: METRONIDAZOLE
     Indication: SKIN DISORDER
     Dosage: 2 DOSAGE FORMS DAILY; STRENGTH: 0.75%?DOSAGE: 1 LUBRICATION MORNING AND EVENING
     Route: 003
     Dates: start: 20171219
  6. LEVETIRACETAM ^ACCORD^ [Concomitant]
     Indication: EPILEPSY
     Dosage: 1000 MILLIGRAM DAILY;
     Route: 048
     Dates: start: 20161003
  7. RISOLID [Concomitant]
     Active Substance: CHLORDIAZEPOXIDE
     Indication: WITHDRAWAL SYNDROME
     Route: 048
     Dates: start: 20180417, end: 20180509
  8. ACULAR [Concomitant]
     Active Substance: KETOROLAC TROMETHAMINE
     Indication: EYE INFLAMMATION
     Dosage: DOSAGE: 1 DROP OF MORNING, DINNER AND NIGHT START THE DAY BEFORE SURGERY
     Route: 050
     Dates: start: 20180425, end: 20180516
  9. LOCOID [Concomitant]
     Active Substance: HYDROCORTISONE BUTYRATE
     Indication: SKIN DISORDER
     Dosage: 2 DOSAGE FORMS DAILY; STRENGTH: 0.1%?DOSAGE: 1 BRUSHING TWICE A DAY
     Route: 003
     Dates: start: 20171219
  10. DEXAMETHASONE. [Concomitant]
     Active Substance: DEXAMETHASONE
     Indication: CONJUNCTIVITIS
     Dosage: 3 GTT DAILY; STRENGTH: 1 + 5MG / ML
     Route: 050
     Dates: start: 20180302
  11. VISK?SE ?JENDR?BER ^OPHTHA^ [Concomitant]
     Indication: LACRIMATION DISORDER
     Dosage: 4 GTT DAILY;
     Route: 050
     Dates: start: 20160502
  12. CAMPRAL [Concomitant]
     Active Substance: ACAMPROSATE CALCIUM
     Indication: ALCOHOL USE
     Dosage: 1998 MILLIGRAM DAILY;
     Route: 048
     Dates: start: 20180419, end: 20180504
  13. PANODIL [Concomitant]
     Active Substance: ACETAMINOPHEN
     Indication: PAIN
     Dosage: DOSAGE: 1 TABLET AS NEEDED, MAXIMUM 3 TIMES.
     Route: 048
     Dates: start: 20161228

REACTIONS (7)
  - Food aversion [Recovered/Resolved]
  - International normalised ratio increased [Recovering/Resolving]
  - Hepatic function abnormal [Recovering/Resolving]
  - Nausea [Recovered/Resolved]
  - Blood alkaline phosphatase increased [Recovering/Resolving]
  - Vomiting [Recovered/Resolved]
  - Alanine aminotransferase increased [Recovering/Resolving]

NARRATIVE: CASE EVENT DATE: 2018
